FAERS Safety Report 10552181 (Version 2)
Quarter: 2015Q1

REPORT INFORMATION
  Report Type: Spontaneous
  Country: US (occurrence: US)
  Receive Date: 20141029
  Receipt Date: 20150216
  Transmission Date: 20150720
  Serious: No
  Sender: FDA-Public Use
  Company Number: US-GLAXOSMITHKLINE-US2014GSK013595

PATIENT
  Sex: Male
  Weight: 70.3 kg

DRUGS (10)
  1. TYLENOL [Concomitant]
     Active Substance: ACETAMINOPHEN
  2. VOTRIENT [Suspect]
     Active Substance: PAZOPANIB HYDROCHLORIDE
     Indication: RENAL CANCER
     Dosage: 800 MG, QD
     Route: 048
     Dates: start: 20140807
  3. LISINOPRIL. [Concomitant]
     Active Substance: LISINOPRIL
  4. LIDOCAINE. [Concomitant]
     Active Substance: LIDOCAINE
  5. HYDROCODONE [Concomitant]
     Active Substance: HYDROCODONE
  6. CARVEDILOL. [Concomitant]
     Active Substance: CARVEDILOL
  7. POTASSIUM CHLORIDE. [Concomitant]
     Active Substance: POTASSIUM CHLORIDE
  8. ONDANSETRON [Concomitant]
     Active Substance: ONDANSETRON
  9. FUROSEMIDE. [Concomitant]
     Active Substance: FUROSEMIDE
  10. SULPHAMETHOXAZOLE + TRIMETHOPRIM [Concomitant]

REACTIONS (4)
  - Diarrhoea [Not Recovered/Not Resolved]
  - Nausea [Not Recovered/Not Resolved]
  - Cardiac disorder [Unknown]
  - Decreased appetite [Not Recovered/Not Resolved]
